FAERS Safety Report 9325138 (Version 1)
Quarter: 2013Q2

REPORT INFORMATION
  Report Type: Spontaneous
  Country: US (occurrence: US)
  Receive Date: 20130603
  Receipt Date: 20130603
  Transmission Date: 20140414
  Serious: No
  Sender: FDA-Public Use
  Company Number: US-009507513-1305USA016896

PATIENT
  Sex: Male

DRUGS (2)
  1. PROPECIA [Suspect]
     Dosage: UNK
     Route: 048
     Dates: start: 20130507
  2. PROPECIA [Suspect]
     Dosage: UNK
     Route: 048
     Dates: start: 200305

REACTIONS (1)
  - Drug ineffective [Unknown]
